FAERS Safety Report 21572291 (Version 2)
Quarter: 2023Q1

REPORT INFORMATION
  Report Type: Report from Study
  Country: US (occurrence: US)
  Receive Date: 20221109
  Receipt Date: 20230318
  Transmission Date: 20230418
  Serious: No
  Sender: FDA-Public Use
  Company Number: US-ABBVIE-4133928

PATIENT
  Age: 55 Year
  Sex: Female

DRUGS (3)
  1. HUMIRA [Suspect]
     Active Substance: ADALIMUMAB
     Indication: Rheumatoid arthritis
     Route: 058
  2. HUMIRA [Suspect]
     Active Substance: ADALIMUMAB
     Dosage: FORM STRENGTH: 40MG
     Route: 058
  3. MODERNA COVID-19 VACCINE [Concomitant]
     Active Substance: ELASOMERAN
     Indication: COVID-19 immunisation

REACTIONS (8)
  - COVID-19 [Unknown]
  - Injection site pruritus [Unknown]
  - Wheezing [Unknown]
  - Injection site haemorrhage [Unknown]
  - Asthenia [Unknown]
  - Injection site swelling [Unknown]
  - Postmenopausal haemorrhage [Unknown]
  - Lung disorder [Unknown]

NARRATIVE: CASE EVENT DATE: 20220901
